FAERS Safety Report 6103936-9 (Version None)
Quarter: 2009Q1

REPORT INFORMATION
  Report Type: 
  Country: None (occurrence: None)
  Receive Date: 20090305
  Receipt Date: 20090224
  Transmission Date: 20090719
  Serious: Yes (Other)
  Sender: FDA-Public Use
  Company Number: B0543801A

PATIENT
  Age: 73 Year
  Sex: Female

DRUGS (9)
  1. TYVERB [Suspect]
     Indication: DRUG USE FOR UNKNOWN INDICATION
     Route: 065
     Dates: start: 20080801, end: 20090101
  2. XELODA [Suspect]
     Indication: DRUG USE FOR UNKNOWN INDICATION
     Route: 065
     Dates: end: 20090101
  3. THYRAX [Concomitant]
  4. SELOKEEN [Concomitant]
  5. METOPROLOL SUCCINATE [Concomitant]
  6. ASCAL [Concomitant]
  7. ZOFRAN [Concomitant]
  8. LOPERAMIDE HCL [Concomitant]
  9. DURAGESIC-100 [Concomitant]

REACTIONS (9)
  - CYSTITIS [None]
  - DECREASED APPETITE [None]
  - DIARRHOEA [None]
  - HERPES ZOSTER [None]
  - NAUSEA [None]
  - OEDEMA PERIPHERAL [None]
  - PAIN [None]
  - PALMAR-PLANTAR ERYTHRODYSAESTHESIA SYNDROME [None]
  - VOMITING [None]
